FAERS Safety Report 10666146 (Version 1)
Quarter: 2014Q4

REPORT INFORMATION
  Report Type: Spontaneous
  Country: JP (occurrence: JP)
  Receive Date: 20141219
  Receipt Date: 20141219
  Transmission Date: 20150529
  Serious: Yes (Death, Other)
  Sender: FDA-Public Use
  Company Number: JP-GE HEALTHCARE MEDICAL DIAGNOSTICS-OMPQ-PR-1412S-1591

PATIENT
  Sex: Male

DRUGS (2)
  1. OMNIPAQUE [Suspect]
     Active Substance: IOHEXOL
     Indication: PRODUCT USED FOR UNKNOWN INDICATION
     Dosage: DOSE NOT REPORTED
  2. OMNIPAQUE [Suspect]
     Active Substance: IOHEXOL
     Indication: DIAGNOSTIC PROCEDURE

REACTIONS (2)
  - Haemoglobin decreased [Unknown]
  - Shock haemorrhagic [Fatal]
